FAERS Safety Report 4295005-8 (Version None)
Quarter: 2004Q1

REPORT INFORMATION
  Report Type: 
  Country: None (occurrence: None)
  Receive Date: 20040216
  Receipt Date: 20040209
  Transmission Date: 20041129
  Serious: Yes (Hospitalization)
  Sender: FDA-Public Use
  Company Number: 200411792GDDC

PATIENT
  Age: 51 Year
  Sex: Female

DRUGS (5)
  1. FLUDEX [Suspect]
     Indication: ESSENTIAL HYPERTENSION
     Dosage: DOSE: 1 DF
     Dates: end: 20031106
  2. NOVORAPID [Suspect]
     Dosage: DOSE: UNK
     Route: 058
     Dates: start: 20031101, end: 20031104
  3. ACTRAPID [Suspect]
     Dosage: DOSE: UNK
     Route: 058
     Dates: start: 20031105, end: 20031106
  4. TAHOR [Concomitant]
     Dosage: DOSE: UNK
  5. KENZEN [Concomitant]
     Dosage: DOSE: UNK
     Dates: end: 20031106

REACTIONS (4)
  - BLOOD LACTATE DEHYDROGENASE INCREASED [None]
  - DIABETES MELLITUS INADEQUATE CONTROL [None]
  - GASTROENTERITIS [None]
  - HAEMOLYTIC ANAEMIA [None]
